FAERS Safety Report 9721959 (Version 1)
Quarter: 2013Q4

REPORT INFORMATION
  Report Type: Spontaneous
  Country: US (occurrence: US)
  Receive Date: 20131202
  Receipt Date: 20131202
  Transmission Date: 20140711
  Serious: Yes (Hospitalization, Other)
  Sender: FDA-Public Use
  Company Number: US-PFIZER INC-2013338734

PATIENT
  Age: 26 Year
  Sex: Male

DRUGS (1)
  1. IBUPROFEN [Suspect]
     Dosage: 800 MG, UNK
     Route: 048

REACTIONS (4)
  - Oesophageal obstruction [Recovered/Resolved]
  - Foreign body [Recovered/Resolved]
  - Salivary hypersecretion [Unknown]
  - Neck pain [Unknown]
